FAERS Safety Report 21838103 (Version 9)
Quarter: 2023Q2

REPORT INFORMATION
  Report Type: Report from Study
  Country: JP (occurrence: JP)
  Receive Date: 20230109
  Receipt Date: 20230616
  Transmission Date: 20230722
  Serious: Yes (Death)
  Sender: FDA-Public Use
  Company Number: JP-ONO-2023JP000179

PATIENT
  Age: 42 Year
  Sex: Male
  Weight: 68.1 kg

DRUGS (4)
  1. BRAFTOVI [Suspect]
     Active Substance: ENCORAFENIB
     Indication: Salivary gland cancer
     Dosage: 450 MG, EVERYDAY
     Route: 048
     Dates: start: 20220208, end: 20221213
  2. MEKTOVI [Suspect]
     Active Substance: BINIMETINIB
     Indication: Salivary gland cancer
     Dosage: 45 MG, Q12H
     Route: 048
     Dates: start: 20220208, end: 20221213
  3. GASTER [Concomitant]
     Active Substance: FAMOTIDINE
     Indication: Gastrointestinal disorder prophylaxis
     Dosage: 20 MG, Q12H
     Route: 048
     Dates: start: 20221227, end: 20230101
  4. RITAROKS [Concomitant]
     Indication: Gastrointestinal disorder prophylaxis
     Dosage: 1.2 G, Q8H (GRAIN)
     Route: 048
     Dates: start: 20230101, end: 20230101

REACTIONS (3)
  - Neoplasm progression [Fatal]
  - Myalgia [Recovering/Resolving]
  - Arthralgia [Recovering/Resolving]

NARRATIVE: CASE EVENT DATE: 20220208
